FAERS Safety Report 11262506 (Version 1)
Quarter: 2015Q3

REPORT INFORMATION
  Report Type: Spontaneous
  Country: ES (occurrence: ES)
  Receive Date: 20150710
  Receipt Date: 20150710
  Transmission Date: 20151125
  Serious: Yes (Hospitalization, Other)
  Sender: FDA-Public Use
  Company Number: ES-VIIV HEALTHCARE LIMITED-ES2015GSK099375

PATIENT
  Age: 44 Year
  Sex: Female

DRUGS (4)
  1. LAMIVUDINE. [Suspect]
     Active Substance: LAMIVUDINE
     Indication: HIV INFECTION
  2. STAVUDINE. [Concomitant]
     Active Substance: STAVUDINE
     Indication: HIV INFECTION
  3. NELFINAVIR [Concomitant]
     Active Substance: NELFINAVIR
     Indication: HIV INFECTION
  4. LOPINAVIR AND RITONAVIR [Suspect]
     Active Substance: LOPINAVIR\RITONAVIR
     Indication: HIV INFECTION

REACTIONS (11)
  - Clonus [Unknown]
  - Paraesthesia [Unknown]
  - Blood HIV RNA increased [Recovered/Resolved]
  - Encephalitis [Recovering/Resolving]
  - Pyrexia [Unknown]
  - Gene mutation [Unknown]
  - Status epilepticus [Recovered/Resolved]
  - Drug resistance [Unknown]
  - Paresis [Unknown]
  - Paralysis [Unknown]
  - Seizure [Unknown]
